FAERS Safety Report 18551249 (Version 2)
Quarter: 2021Q1

REPORT INFORMATION
  Report Type: Spontaneous
  Country: CZ (occurrence: CZ)
  Receive Date: 20201126
  Receipt Date: 20210205
  Transmission Date: 20210419
  Serious: Yes (Other)
  Sender: FDA-Public Use
  Company Number: CZ-BAUSCH-BL-2020-033611

PATIENT

DRUGS (41)
  1. DEXAMETHASONE. [Suspect]
     Active Substance: DEXAMETHASONE
     Dosage: RCD TREATMENT (RITUXIMAB, CYCLOPHOSPHAMIDE, DEXAMETHASONE) CYCLE 3
     Route: 065
  2. DEXAMETHASONE. [Suspect]
     Active Substance: DEXAMETHASONE
     Dosage: RCD TREATMENT (RITUXIMAB, CYCLOPHOSPHAMIDE, DEXAMETHASONE) CYCLE 5
     Route: 065
  3. FLUDARABINE [Suspect]
     Active Substance: FLUDARABINE PHOSPHATE
     Dosage: CYCLE 2
     Route: 065
  4. RITUXIMAB. [Suspect]
     Active Substance: RITUXIMAB
     Dosage: CYCLE 2
     Route: 065
  5. RITUXIMAB. [Suspect]
     Active Substance: RITUXIMAB
     Dosage: CYCLE 4
     Route: 065
  6. CYCLOPHOSPHAMIDE. [Suspect]
     Active Substance: CYCLOPHOSPHAMIDE
     Dosage: CYCLE 4
     Route: 065
  7. DEXAMETHASONE. [Suspect]
     Active Substance: DEXAMETHASONE
     Dosage: RCD TREATMENT (RITUXIMAB, CYCLOPHOSPHAMIDE, DEXAMETHASONE) CYCLE 6
     Route: 065
  8. RITUXIMAB. [Suspect]
     Active Substance: RITUXIMAB
     Dosage: CYCLE 3
     Route: 065
  9. RITUXIMAB. [Suspect]
     Active Substance: RITUXIMAB
     Dosage: RCD TREATMENT (RITUXIMAB, CYCLOPHOSPHAMIDE, DEXAMETHASONE) CYCLE 1
     Route: 065
  10. RITUXIMAB. [Suspect]
     Active Substance: RITUXIMAB
     Dosage: RCD TREATMENT (RITUXIMAB, CYCLOPHOSPHAMIDE, DEXAMETHASONE) CYCLE 2
     Route: 065
  11. CYCLOPHOSPHAMIDE. [Suspect]
     Active Substance: CYCLOPHOSPHAMIDE
     Dosage: CYCLE 5
     Route: 065
  12. CYCLOPHOSPHAMIDE. [Suspect]
     Active Substance: CYCLOPHOSPHAMIDE
     Dosage: RCD TREATMENT (RITUXIMAB, CYCLOPHOSPHAMIDE, DEXAMETHASONE) CYCLE 3
     Route: 065
  13. VENETOCLAX. [Concomitant]
     Active Substance: VENETOCLAX
     Indication: CHRONIC LYMPHOCYTIC LEUKAEMIA
     Route: 065
  14. FLUDARABINE [Suspect]
     Active Substance: FLUDARABINE PHOSPHATE
     Dosage: CYCLE 4
     Route: 065
  15. RITUXIMAB. [Suspect]
     Active Substance: RITUXIMAB
     Dosage: FOLLOWING DISEASE PROGRESSION, RITUXIMAB WAS GIVEN
     Route: 065
  16. FLUDARABINE [Suspect]
     Active Substance: FLUDARABINE PHOSPHATE
     Dosage: CYCLE 3
     Route: 065
  17. FLUDARABINE [Suspect]
     Active Substance: FLUDARABINE PHOSPHATE
     Dosage: CYCLE 5
     Route: 065
  18. RITUXIMAB. [Suspect]
     Active Substance: RITUXIMAB
     Dosage: RCD TREATMENT (RITUXIMAB, CYCLOPHOSPHAMIDE, DEXAMETHASONE) CYCLE 4
     Route: 065
  19. RITUXIMAB. [Suspect]
     Active Substance: RITUXIMAB
     Dosage: RCD TREATMENT (RITUXIMAB, CYCLOPHOSPHAMIDE, DEXAMETHASONE) CYCLE 6
     Route: 065
  20. CYCLOPHOSPHAMIDE. [Suspect]
     Active Substance: CYCLOPHOSPHAMIDE
     Dosage: RCD TREATMENT (RITUXIMAB, CYCLOPHOSPHAMIDE, DEXAMETHASONE) CYCLE 5
     Route: 065
  21. CYCLOPHOSPHAMIDE. [Suspect]
     Active Substance: CYCLOPHOSPHAMIDE
     Dosage: FOLLOWING DISEASE PROGRESSION, RITUXIMAB WAS GIVEN
     Route: 065
  22. BLEOMYCIN [Suspect]
     Active Substance: BLEOMYCIN SULFATE
     Dosage: SECOND DOSE (APPLIED TWICE)
     Route: 065
  23. DEXAMETHASONE. [Suspect]
     Active Substance: DEXAMETHASONE
     Indication: CHRONIC LYMPHOCYTIC LEUKAEMIA
     Dosage: RCD TREATMENT (RITUXIMAB, CYCLOPHOSPHAMIDE, DEXAMETHASONE) CYCLE 1
     Route: 065
  24. FLUDARABINE [Suspect]
     Active Substance: FLUDARABINE PHOSPHATE
     Indication: CHRONIC LYMPHOCYTIC LEUKAEMIA
     Dosage: CYCLE 1
     Route: 065
  25. RITUXIMAB. [Suspect]
     Active Substance: RITUXIMAB
     Indication: CHRONIC LYMPHOCYTIC LEUKAEMIA
     Dosage: CYCLE 1
     Route: 065
  26. RITUXIMAB. [Suspect]
     Active Substance: RITUXIMAB
     Dosage: RCD TREATMENT (RITUXIMAB, CYCLOPHOSPHAMIDE, DEXAMETHASONE) CYCLE 5
     Route: 065
  27. CYCLOPHOSPHAMIDE. [Suspect]
     Active Substance: CYCLOPHOSPHAMIDE
     Dosage: CYCLE 2
     Route: 065
  28. CYCLOPHOSPHAMIDE. [Suspect]
     Active Substance: CYCLOPHOSPHAMIDE
     Dosage: RCD TREATMENT (RITUXIMAB, CYCLOPHOSPHAMIDE, DEXAMETHASONE) CYCLE 1
     Route: 065
  29. FLUDARABINE [Suspect]
     Active Substance: FLUDARABINE PHOSPHATE
     Dosage: FOLLOWING DISEASE PROGRESSION, FLUDARABINE WAS GIVEN
     Route: 065
  30. RITUXIMAB. [Suspect]
     Active Substance: RITUXIMAB
     Dosage: CYCLE 5
     Route: 065
  31. CYCLOPHOSPHAMIDE. [Suspect]
     Active Substance: CYCLOPHOSPHAMIDE
     Indication: CHRONIC LYMPHOCYTIC LEUKAEMIA
     Dosage: CYCLE 1
     Route: 065
  32. CYCLOPHOSPHAMIDE. [Suspect]
     Active Substance: CYCLOPHOSPHAMIDE
     Dosage: RCD TREATMENT (RITUXIMAB, CYCLOPHOSPHAMIDE, DEXAMETHASONE) CYCLE 2
     Route: 065
  33. CYCLOPHOSPHAMIDE. [Suspect]
     Active Substance: CYCLOPHOSPHAMIDE
     Dosage: RCD TREATMENT (RITUXIMAB, CYCLOPHOSPHAMIDE, DEXAMETHASONE) CYCLE 6
     Route: 065
  34. BLEOMYCIN [Suspect]
     Active Substance: BLEOMYCIN SULFATE
     Indication: CHRONIC LYMPHOCYTIC LEUKAEMIA
     Dosage: FIRST DOSE (APPLIED TWICE)
     Route: 065
  35. IDELALISIB [Suspect]
     Active Substance: IDELALISIB
     Indication: CHRONIC LYMPHOCYTIC LEUKAEMIA
     Dosage: WITH RITUXIMAB
     Route: 065
  36. DEXAMETHASONE. [Suspect]
     Active Substance: DEXAMETHASONE
     Dosage: RCD TREATMENT (RITUXIMAB, CYCLOPHOSPHAMIDE, DEXAMETHASONE) CYCLE 2
     Route: 065
  37. RITUXIMAB. [Suspect]
     Active Substance: RITUXIMAB
     Dosage: RCD TREATMENT (RITUXIMAB, CYCLOPHOSPHAMIDE, DEXAMETHASONE) CYCLE 3
     Route: 065
  38. CYCLOPHOSPHAMIDE. [Suspect]
     Active Substance: CYCLOPHOSPHAMIDE
     Dosage: RCD TREATMENT (RITUXIMAB, CYCLOPHOSPHAMIDE, DEXAMETHASONE) CYCLE 4
     Route: 065
  39. DEXAMETHASONE. [Suspect]
     Active Substance: DEXAMETHASONE
     Dosage: RCD TREATMENT (RITUXIMAB, CYCLOPHOSPHAMIDE, DEXAMETHASONE) CYCLE 4
     Route: 065
  40. RITUXIMAB. [Suspect]
     Active Substance: RITUXIMAB
     Dosage: WITH IDEALALISIB
     Route: 065
  41. CYCLOPHOSPHAMIDE. [Suspect]
     Active Substance: CYCLOPHOSPHAMIDE
     Dosage: CYCLE 3
     Route: 065

REACTIONS (6)
  - Febrile neutropenia [Unknown]
  - Retroperitoneal lymphadenopathy [Unknown]
  - Disease progression [Unknown]
  - Device related sepsis [Unknown]
  - Neutropenia [Unknown]
  - Clostridium colitis [Unknown]
